FAERS Safety Report 20221326 (Version 1)
Quarter: 2021Q4

REPORT INFORMATION
  Report Type: Spontaneous
  Country: US (occurrence: US)
  Receive Date: 20211223
  Receipt Date: 20211223
  Transmission Date: 20220304
  Serious: No
  Sender: FDA-Public Use
  Company Number: US-SABAL THERAPEUTICS LLC-2021-ATH-000007

PATIENT
  Age: 8 Year
  Sex: Male

DRUGS (3)
  1. OZOBAX [Suspect]
     Active Substance: BACLOFEN
     Indication: Musculoskeletal stiffness
     Dosage: 2 DF
     Dates: start: 20211006, end: 20211006
  2. OZOBAX [Suspect]
     Active Substance: BACLOFEN
     Dosage: 1 DF
     Dates: start: 20211007, end: 20211007
  3. ALPRAZOLAM [Concomitant]
     Active Substance: ALPRAZOLAM
     Indication: Product used for unknown indication
     Dosage: 15 MG, TID

REACTIONS (1)
  - Chills [Unknown]
